FAERS Safety Report 7268447-6 (Version None)
Quarter: 2011Q1

REPORT INFORMATION
  Report Type: 
  Country: None (occurrence: None)
  Receive Date: 20110201
  Receipt Date: 20110119
  Transmission Date: 20110831
  Serious: Yes (Hospitalization)
  Sender: FDA-Public Use
  Company Number: IT-MYLANLABS-2011S1001221

PATIENT
  Age: 55 Year
  Sex: Male

DRUGS (4)
  1. PANTORC /01263202/ [Concomitant]
     Indication: PRODUCT USED FOR UNKNOWN INDICATION
  2. CARDICOR [Concomitant]
     Indication: PRODUCT USED FOR UNKNOWN INDICATION
  3. LORAZEPAM [Suspect]
     Indication: INSOMNIA
     Route: 048
     Dates: start: 20110113, end: 20110113
  4. COUMADIN [Concomitant]
     Indication: PRODUCT USED FOR UNKNOWN INDICATION

REACTIONS (4)
  - CONFUSIONAL STATE [None]
  - DYSARTHRIA [None]
  - BRADYKINESIA [None]
  - BRADYPHRENIA [None]
